FAERS Safety Report 22096744 (Version 1)
Quarter: 2023Q1

REPORT INFORMATION
  Report Type: Spontaneous
  Country: US (occurrence: None)
  Receive Date: 20230315
  Receipt Date: 20230315
  Transmission Date: 20230417
  Serious: No
  Sender: FDA-Public Use
  Company Number: 2023A044710

PATIENT
  Sex: Female

DRUGS (1)
  1. LYNPARZA [Suspect]
     Active Substance: OLAPARIB
     Dosage: 500 MG/ 2 TABLETS TWICE DAILY (500 MG IN THE MORNING/NIGHT)
     Route: 048

REACTIONS (3)
  - Hernia [Unknown]
  - Nausea [Unknown]
  - Off label use [Unknown]
